FAERS Safety Report 17877503 (Version 3)
Quarter: 2021Q1

REPORT INFORMATION
  Report Type: Report from Study
  Country: KR (occurrence: KR)
  Receive Date: 20200609
  Receipt Date: 20210104
  Transmission Date: 20210419
  Serious: Yes (Hospitalization, Other)
  Sender: FDA-Public Use
  Company Number: KR-JNJFOC-20200535459

PATIENT
  Age: 76 Year
  Sex: Male
  Weight: 52 kg

DRUGS (7)
  1. PREDNISOLONE. [Suspect]
     Active Substance: PREDNISOLONE
     Indication: PROSTATE CANCER METASTATIC
     Route: 048
  2. ZYTIGA [Suspect]
     Active Substance: ABIRATERONE ACETATE
     Indication: PROSTATE CANCER METASTATIC
     Route: 048
     Dates: start: 20200413, end: 20200518
  3. HARNAL [Concomitant]
     Active Substance: TAMSULOSIN HYDROCHLORIDE
     Indication: DYSURIA
     Route: 048
     Dates: start: 20190610
  4. TOVIAZ [Concomitant]
     Active Substance: FESOTERODINE FUMARATE
     Indication: DYSURIA
     Route: 048
     Dates: start: 20190610
  5. CAL D                              /00944201/ [Concomitant]
     Active Substance: CALCIUM CARBONATE\CHOLECALCIFEROL
     Indication: DYSURIA
     Route: 048
     Dates: start: 20191007
  6. MIRABEGRON [Concomitant]
     Active Substance: MIRABEGRON
     Indication: DYSURIA
     Route: 048
     Dates: start: 20190429
  7. CEZARPLUS [Concomitant]
     Indication: HYPERTENSION
     Route: 048
     Dates: start: 20200302, end: 20200518

REACTIONS (5)
  - Asthenia [Recovering/Resolving]
  - Azotaemia [Recovering/Resolving]
  - Abnormal loss of weight [Recovering/Resolving]
  - Urinary tract obstruction [Recovered/Resolved]
  - Blood pressure decreased [Recovering/Resolving]

NARRATIVE: CASE EVENT DATE: 20200505
